FAERS Safety Report 6539134-4 (Version None)
Quarter: 2010Q1

REPORT INFORMATION
  Report Type: 
  Country: None (occurrence: None)
  Receive Date: 20100110
  Receipt Date: 20091116
  Transmission Date: 20100710
  Serious: Yes (Other)
  Sender: FDA-Public Use
  Company Number: 2009-00010

PATIENT
  Age: 79 Year
  Sex: Female

DRUGS (4)
  1. SERTRALINE HCL [Suspect]
     Indication: GENERALISED ANXIETY DISORDER
     Dosage: ORAL
     Route: 048
     Dates: start: 20060930, end: 20060930
  2. ASPIRIN [Concomitant]
  3. ATORVASTATIN CALCIUM [Concomitant]
  4. LEVOTHYROXINE SODIUM [Concomitant]

REACTIONS (1)
  - POST PROCEDURAL HAEMORRHAGE [None]
